FAERS Safety Report 22119149 (Version 1)
Quarter: 2023Q1

REPORT INFORMATION
  Report Type: Spontaneous
  Country: FI (occurrence: FI)
  Receive Date: 20230321
  Receipt Date: 20230321
  Transmission Date: 20230418
  Serious: Yes (Hospitalization)
  Sender: FDA-Public Use
  Company Number: None

PATIENT
  Age: 50 Year
  Sex: Female

DRUGS (5)
  1. PERMETHRIN [Suspect]
     Active Substance: PERMETHRIN
     Indication: Acarodermatitis
     Dosage: 1 DOSAGE FORM, QD
     Route: 061
     Dates: start: 20221124
  2. SCATOL [Concomitant]
     Indication: Acarodermatitis
     Dosage: 30,MG,X1
     Route: 048
     Dates: start: 20230127, end: 20230127
  3. QUETIAPINE [Concomitant]
     Active Substance: QUETIAPINE
     Indication: Bipolar disorder
     Dosage: 400,MG,DAILY
     Route: 048
  4. QUETIAPINE FUMARATE [Concomitant]
     Active Substance: QUETIAPINE FUMARATE
     Indication: Bipolar disorder
     Dosage: 300,MG,DAILY
     Route: 048
  5. LEVOTHYROXINE [Concomitant]
     Active Substance: LEVOTHYROXINE
     Indication: Hypothyroidism
     Dosage: 25,?G,DAILY
     Route: 048

REACTIONS (7)
  - Skin reaction [Recovering/Resolving]
  - Skin infection [Recovering/Resolving]
  - Oedema [Recovering/Resolving]
  - Papule [Recovering/Resolving]
  - C-reactive protein increased [Recovering/Resolving]
  - Erythema [Recovering/Resolving]
  - Pruritus [Recovering/Resolving]

NARRATIVE: CASE EVENT DATE: 20221124
